FAERS Safety Report 4793716-9 (Version None)
Quarter: 2005Q4

REPORT INFORMATION
  Report Type: 
  Country: None (occurrence: None)
  Receive Date: 20051006
  Receipt Date: 20051005
  Transmission Date: 20060501
  Serious: Yes (Other)
  Sender: FDA-Public Use
  Company Number: 004914

PATIENT
  Age: 28 Year
  Sex: Female
  Weight: 66.2 kg

DRUGS (4)
  1. SEASONALE [Suspect]
     Indication: ORAL CONTRACEPTION
     Dosage: 1.00 TABLET, QD, ORAL
     Route: 048
     Dates: start: 20040801, end: 20050101
  2. BUTALBITAL [Suspect]
     Indication: MIGRAINE
     Dosage: ORAL
     Route: 048
  3. LAMICTAL [Suspect]
     Indication: DYSTHYMIC DISORDER
     Dosage: ORAL
     Route: 048
  4. SEROQUEL [Concomitant]

REACTIONS (4)
  - ABORTION [None]
  - DRUG INTERACTION [None]
  - INTRA-UTERINE DEATH [None]
  - PREGNANCY ON ORAL CONTRACEPTIVE [None]
